FAERS Safety Report 6622761-3 (Version None)
Quarter: 2010Q1

REPORT INFORMATION
  Report Type: 
  Country: None (occurrence: None)
  Receive Date: 20100304
  Receipt Date: 20100223
  Transmission Date: 20100710
  Serious: Yes (Other)
  Sender: FDA-Public Use
  Company Number: 2009JP004256

PATIENT
  Sex: Female
  Weight: 53 kg

DRUGS (5)
  1. PROGRAF [Suspect]
     Indication: MYASTHENIA GRAVIS
     Dosage: 0.5 MG, UID/QD, 0.25 MG, UID/QD,
     Dates: start: 20071101
  2. PROGRAF [Suspect]
     Indication: MYASTHENIA GRAVIS
     Dosage: 0.5 MG, UID/QD, 0.25 MG, UID/QD,
     Dates: start: 20081201
  3. PREDNISOLONE [Concomitant]
  4. MYTELASE [Concomitant]
  5. MESTINON [Concomitant]

REACTIONS (1)
  - APLASIA PURE RED CELL [None]
